FAERS Safety Report 6058899-1 (Version None)
Quarter: 2009Q1

REPORT INFORMATION
  Report Type: 
  Country: None (occurrence: None)
  Receive Date: 20090130
  Receipt Date: 20090129
  Transmission Date: 20090719
  Serious: Yes (Other)
  Sender: FDA-Public Use
  Company Number: AT-RB-007000-09

PATIENT
  Age: 26 Year
  Sex: Female

DRUGS (6)
  1. SUBUTEX [Suspect]
     Route: 065
     Dates: start: 20081107
  2. SUBOXONE [Suspect]
     Route: 065
     Dates: start: 20080924
  3. SUBOXONE [Suspect]
     Route: 065
     Dates: start: 20081021, end: 20081106
  4. SUBOXONE [Suspect]
     Route: 065
     Dates: start: 20081017
  5. ACETAMINOPHEN [Concomitant]
     Indication: HEADACHE
     Route: 048
     Dates: start: 20081126, end: 20081129
  6. ELEVIT PRONATAL [Concomitant]
     Indication: PREGNANCY
     Dosage: UNKNOWN AMOUNT TAKEN ONCE DAILY.
     Route: 048
     Dates: start: 20081107, end: 20081218

REACTIONS (2)
  - ABORTION MISSED [None]
  - DRUG EXPOSURE DURING PREGNANCY [None]
